FAERS Safety Report 9285749 (Version 1)
Quarter: 2013Q2

REPORT INFORMATION
  Report Type: Spontaneous
  Country: CO (occurrence: CO)
  Receive Date: 20130513
  Receipt Date: 20130513
  Transmission Date: 20140414
  Serious: Yes (Other)
  Sender: FDA-Public Use
  Company Number: CO-AMGEN-COLSP2012044640

PATIENT
  Age: 27 Year
  Sex: Female

DRUGS (9)
  1. ENBREL [Suspect]
     Indication: RHEUMATOID ARTHRITIS
     Dosage: 50 MG, WEEKLY
     Route: 058
     Dates: start: 201203, end: 20130313
  2. ENBREL [Suspect]
     Dosage: 50 MG, WEEKLY
     Route: 058
     Dates: start: 20130405
  3. PREDNISOLONE [Concomitant]
     Indication: RHEUMATOID ARTHRITIS
     Dosage: 5 MG, 1X/DAY
     Route: 048
     Dates: start: 1997
  4. FOLIC ACID [Concomitant]
     Indication: OSTEOPOROSIS
     Dosage: 1 MG, 1X/DAY
     Route: 048
     Dates: start: 201203
  5. FOLIC ACID [Concomitant]
     Indication: RHEUMATOID ARTHRITIS
  6. METHOTREXATE [Concomitant]
     Indication: RHEUMATOID ARTHRITIS
     Dosage: 2 TABLETS ON SATURDAY AND SUNDAY, WEEKL
     Dates: start: 2012
  7. ARALEN                             /00001002/ [Concomitant]
     Indication: VISUAL ACUITY REDUCED
     Dosage: UNK
     Route: 065
  8. ACETAMINOPHEN [Concomitant]
     Indication: PAIN
     Dosage: 500 MG, 2X/DAY
     Route: 048
     Dates: start: 2002
  9. CALCIUM WITH VITAMIN D             /01233101/ [Concomitant]
     Indication: GASTRITIS
     Dosage: UNK
     Route: 048
     Dates: start: 2005, end: 201209

REACTIONS (10)
  - Multiple fractures [Not Recovered/Not Resolved]
  - Accident [Not Recovered/Not Resolved]
  - Joint dislocation [Not Recovered/Not Resolved]
  - Mobility decreased [Not Recovered/Not Resolved]
  - Haemorrhoids [Not Recovered/Not Resolved]
  - Injection site pain [Recovered/Resolved]
  - Injection site erythema [Not Recovered/Not Resolved]
  - Injection site pruritus [Not Recovered/Not Resolved]
  - Injection site swelling [Recovering/Resolving]
  - Injection site haematoma [Not Recovered/Not Resolved]
